FAERS Safety Report 13011538 (Version 1)
Quarter: 2016Q4

REPORT INFORMATION
  Report Type: Spontaneous
  Country: GB (occurrence: GB)
  Receive Date: 20161209
  Receipt Date: 20161209
  Transmission Date: 20170207
  Serious: Yes (Other)
  Sender: FDA-Public Use
  Company Number: GB-ACCORD-046122

PATIENT
  Age: 69 Year
  Sex: Female
  Weight: 57 kg

DRUGS (2)
  1. RAMIPRIL. [Suspect]
     Active Substance: RAMIPRIL
     Indication: PRODUCT USED FOR UNKNOWN INDICATION
     Dates: start: 20160825, end: 20160922
  2. INDAPAMIDE/INDAPAMIDE HEMIHYDRATE [Concomitant]
     Indication: HYPERTENSION
     Dosage: EACH MORNING.
     Dates: start: 20161115

REACTIONS (2)
  - Rash pruritic [Recovered/Resolved]
  - Contusion [Recovered/Resolved]

NARRATIVE: CASE EVENT DATE: 20160914
